FAERS Safety Report 8873014 (Version 1)
Quarter: 2012Q4

REPORT INFORMATION
  Report Type: Report from Study
  Country: DE (occurrence: DE)
  Receive Date: 20121030
  Receipt Date: 20121030
  Transmission Date: 20130627
  Serious: Yes (Hospitalization)
  Sender: FDA-Public Use
  Company Number: DE-ROCHE-1150515

PATIENT

DRUGS (3)
  1. RANIBIZUMAB [Suspect]
     Indication: AGE-RELATED MACULAR DEGENERATION
     Route: 050
     Dates: start: 201204
  2. RANIBIZUMAB [Suspect]
     Route: 065
     Dates: start: 20120509
  3. RANIBIZUMAB [Suspect]
     Route: 065
     Dates: start: 20120606

REACTIONS (1)
  - Upper limb fracture [Unknown]
